FAERS Safety Report 10558018 (Version 3)
Quarter: 2014Q4

REPORT INFORMATION
  Report Type: Report from Study
  Country: CA (occurrence: CA)
  Receive Date: 20141031
  Receipt Date: 20141111
  Transmission Date: 20150529
  Serious: Yes (Death, Hospitalization)
  Sender: FDA-Public Use
  Company Number: PHHY2014CA082925

PATIENT
  Age: 64 Year
  Sex: Male

DRUGS (1)
  1. EXJADE [Suspect]
     Active Substance: DEFERASIROX
     Indication: MYELODYSPLASTIC SYNDROME
     Dosage: 1750 MG, QD
     Route: 048
     Dates: start: 20140609

REACTIONS (6)
  - Death [Fatal]
  - Pneumonia [Unknown]
  - Device occlusion [Unknown]
  - Abdominal discomfort [Unknown]
  - Diarrhoea [Unknown]
  - Blood iron increased [Unknown]

NARRATIVE: CASE EVENT DATE: 20140702
